FAERS Safety Report 4955691-3 (Version None)
Quarter: 2006Q1

REPORT INFORMATION
  Report Type: 
  Country: None (occurrence: None)
  Receive Date: 20060328
  Receipt Date: 20050928
  Transmission Date: 20060701
  Serious: Yes (Death, Hospitalization)
  Sender: FDA-Public Use
  Company Number: US-MERCK-0509USA04928

PATIENT
  Age: 70 Year
  Sex: Male
  Weight: 84 kg

DRUGS (6)
  1. VIOXX [Suspect]
     Indication: SHOULDER PAIN
     Route: 048
     Dates: start: 20040101, end: 20040901
  2. VIOXX [Suspect]
     Indication: PAIN IN EXTREMITY
     Route: 048
     Dates: start: 20040101, end: 20040901
  3. DIOVAN [Concomitant]
     Route: 065
  4. LIPITOR [Concomitant]
     Route: 065
  5. ACTOS [Concomitant]
     Route: 065
  6. GLUCOPHAGE [Concomitant]
     Route: 065

REACTIONS (3)
  - CEREBROVASCULAR ACCIDENT [None]
  - DEATH [None]
  - MIGRAINE [None]
